FAERS Safety Report 6649569-7 (Version None)
Quarter: 2010Q1

REPORT INFORMATION
  Report Type: 
  Country: None (occurrence: None)
  Receive Date: 20100324
  Receipt Date: 20100324
  Transmission Date: 20100710
  Serious: No
  Sender: FDA-Public Use
  Company Number: None

PATIENT
  Age: 53 Year
  Sex: Male
  Weight: 97.5234 kg

DRUGS (2)
  1. CIPROFLOXACIN [Suspect]
     Indication: EAR INFECTION
     Dosage: 1 TABLET TWICE DAILY PO
     Route: 048
  2. CIPRO HC [Suspect]
     Dosage: TWO DROPS TWICE DAILY/1WEEK OTIC
     Route: 001

REACTIONS (3)
  - ANAL HAEMORRHAGE [None]
  - TENDON DISORDER [None]
  - TENDON RUPTURE [None]
